FAERS Safety Report 23592160 (Version 1)
Quarter: 2024Q1

REPORT INFORMATION
  Report Type: Spontaneous
  Country: US (occurrence: None)
  Receive Date: 20240302
  Receipt Date: 20240302
  Transmission Date: 20240410
  Serious: Yes (Other)
  Sender: FDA-Public Use
  Company Number: None

PATIENT
  Age: 32 Year
  Sex: Female
  Weight: 73.7 kg

DRUGS (1)
  1. TEPEZZA [Suspect]
     Active Substance: TEPROTUMUMAB-TRBW
     Indication: Endocrine ophthalmopathy
     Dosage: OTHER FREQUENCY : EVERY 3 WEEKS;?
     Route: 042
     Dates: start: 20240126

REACTIONS (6)
  - Blood pressure increased [None]
  - Heart rate increased [None]
  - Flushing [None]
  - Therapy interrupted [None]
  - Menstrual disorder [None]
  - Infusion related reaction [None]

NARRATIVE: CASE EVENT DATE: 20240126
